FAERS Safety Report 20746187 (Version 2)
Quarter: 2022Q3

REPORT INFORMATION
  Report Type: Report from Study
  Country: US (occurrence: US)
  Receive Date: 20220425
  Receipt Date: 20220722
  Transmission Date: 20221026
  Serious: Yes (Hospitalization)
  Sender: FDA-Public Use
  Company Number: US-MIRM-000356

PATIENT
  Age: 3 Year
  Sex: Female

DRUGS (1)
  1. LIVMARLI [Suspect]
     Active Substance: MARALIXIBAT CHLORIDE
     Indication: Product used for unknown indication
     Route: 048

REACTIONS (3)
  - Liver transplant [Unknown]
  - Fracture [Unknown]
  - Fracture [Unknown]

NARRATIVE: CASE EVENT DATE: 20210401
